FAERS Safety Report 8399491-3 (Version None)
Quarter: 2012Q2

REPORT INFORMATION
  Report Type: 
  Country: None (occurrence: None)
  Receive Date: 20120323
  Receipt Date: 20110324
  Transmission Date: 20120825
  Serious: Yes (Disabling)
  Sender: FDA-Public Use
  Company Number: 163-21880-11011967

PATIENT
  Age: 69 Year
  Sex: Female

DRUGS (4)
  1. ENALAPRIL MALEATE [Concomitant]
  2. REVLIMID [Suspect]
     Indication: MULTIPLE MYELOMA
     Dosage: 15 MG, DAILY X 21 DAYS, PO
     Route: 048
     Dates: start: 20110105
  3. ASPIRIN [Concomitant]
  4. DEXAMETHASONE [Concomitant]

REACTIONS (7)
  - HEADACHE [None]
  - ARTHRALGIA [None]
  - PARAESTHESIA [None]
  - DIZZINESS [None]
  - DRY SKIN [None]
  - PAIN IN EXTREMITY [None]
  - COUGH [None]
